FAERS Safety Report 20513235 (Version 1)
Quarter: 2022Q1

REPORT INFORMATION
  Report Type: Spontaneous
  Country: US (occurrence: US)
  Receive Date: 20220224
  Receipt Date: 20220224
  Transmission Date: 20220423
  Serious: No
  Sender: FDA-Public Use
  Company Number: US-PFIZER INC-2021709095

PATIENT
  Age: 21 Year
  Sex: Female

DRUGS (1)
  1. XELJANZ XR [Suspect]
     Active Substance: TOFACITINIB CITRATE
     Indication: Rheumatoid arthritis
     Dosage: 11 MG, DAILY
     Route: 048
     Dates: start: 2019

REACTIONS (7)
  - Product dose omission in error [Unknown]
  - Malaise [Unknown]
  - Arthralgia [Unknown]
  - Tenderness [Unknown]
  - Gait disturbance [Unknown]
  - Depression [Recovering/Resolving]
  - Discouragement [Recovering/Resolving]
